FAERS Safety Report 14604958 (Version 1)
Quarter: 2018Q1

REPORT INFORMATION
  Report Type: Spontaneous
  Country: US (occurrence: US)
  Receive Date: 20180306
  Receipt Date: 20180306
  Transmission Date: 20180509
  Serious: Yes (Hospitalization)
  Sender: FDA-Public Use
  Company Number: PHEH2018US008068

PATIENT
  Sex: Male

DRUGS (1)
  1. COSENTYX [Suspect]
     Active Substance: SECUKINUMAB
     Indication: PSORIASIS
     Dosage: 500 MG, QW
     Route: 058
     Dates: start: 20170115

REACTIONS (2)
  - Appendicitis [Not Recovered/Not Resolved]
  - Post procedural infection [Not Recovered/Not Resolved]
